FAERS Safety Report 19224909 (Version 1)
Quarter: 2021Q2

REPORT INFORMATION
  Report Type: Report from Study
  Country: CA (occurrence: CA)
  Receive Date: 20210506
  Receipt Date: 20210506
  Transmission Date: 20210717
  Serious: Yes (Death, Other)
  Sender: FDA-Public Use
  Company Number: CA-ASTRAZENECA-2021A372654

PATIENT
  Sex: Female

DRUGS (1)
  1. TAGRISSO [Suspect]
     Active Substance: OSIMERTINIB
     Indication: NON-SMALL CELL LUNG CANCER
     Route: 048
     Dates: end: 202008

REACTIONS (6)
  - Metastases to peritoneum [Unknown]
  - Lymphangiosis carcinomatosa [Unknown]
  - Death [Fatal]
  - Metastases to central nervous system [Unknown]
  - Renal failure [Unknown]
  - Pulmonary oedema [Unknown]
